FAERS Safety Report 6838574-3 (Version None)
Quarter: 2010Q3

REPORT INFORMATION
  Report Type: 
  Country: None (occurrence: None)
  Receive Date: 20100713
  Receipt Date: 20070615
  Transmission Date: 20110219
  Serious: No
  Sender: FDA-Public Use
  Company Number: US-PFIZER INC-2007051182

PATIENT
  Sex: Female

DRUGS (5)
  1. CHANTIX [Suspect]
     Indication: SMOKING CESSATION THERAPY
     Route: 048
     Dates: start: 20070604
  2. LEVOTHYROXINE SODIUM [Concomitant]
  3. NIFEDIPINE [Concomitant]
  4. AMBIEN [Concomitant]
  5. CRESTOR [Concomitant]

REACTIONS (1)
  - NAUSEA [None]
